FAERS Safety Report 5234061-7 (Version None)
Quarter: 2007Q1

REPORT INFORMATION
  Report Type: 
  Country: None (occurrence: None)
  Receive Date: 20070208
  Receipt Date: 20070129
  Transmission Date: 20070707
  Serious: Yes (Other)
  Sender: FDA-Public Use
  Company Number: US-PFIZER INC-2007004223

PATIENT
  Sex: Female
  Weight: 91.2 kg

DRUGS (18)
  1. REVATIO [Suspect]
     Indication: PULMONARY HYPERTENSION
     Route: 048
  2. CAFFEINE [Suspect]
  3. FUROSEMIDE [Concomitant]
  4. WARFARIN SODIUM [Concomitant]
  5. AVAPRO [Concomitant]
  6. POLYETHYLENE GLYCOL [Concomitant]
  7. ACETAMINOPHEN [Concomitant]
  8. VERAPAMIL [Concomitant]
  9. TRACLEER [Concomitant]
  10. NOVOLOG [Concomitant]
     Indication: DIABETES MELLITUS INSULIN-DEPENDENT
  11. LANTUS [Concomitant]
     Indication: DIABETES MELLITUS INSULIN-DEPENDENT
  12. AMITRIPTYLINE HCL [Concomitant]
  13. LIPITOR [Concomitant]
  14. NEXIUM [Concomitant]
  15. TYLENOL [Concomitant]
  16. ALL OTHER THERAPEUTIC PRODUCTS [Concomitant]
  17. TORSEMIDE [Concomitant]
  18. POTASSIUM CHLORIDE [Concomitant]

REACTIONS (10)
  - ASTHENIA [None]
  - DRUG INEFFECTIVE [None]
  - FEELING HOT [None]
  - FLUSHING [None]
  - NAUSEA [None]
  - NERVOUSNESS [None]
  - PALLOR [None]
  - PALPITATIONS [None]
  - PULMONARY HYPERTENSION [None]
  - VOMITING [None]
